FAERS Safety Report 7398813-X (Version None)
Quarter: 2011Q2

REPORT INFORMATION
  Report Type: 
  Country: None (occurrence: None)
  Receive Date: 20110404
  Receipt Date: 20110404
  Transmission Date: 20111010
  Serious: Yes (Life-Threatening)
  Sender: FDA-Public Use
  Company Number: None

PATIENT
  Age: 61 Year
  Sex: Male
  Weight: 149 kg

DRUGS (2)
  1. LISINOPRIL [Suspect]
     Indication: HYPERTENSION
     Dosage: 40 MG EVERY DAY PO
     Route: 048
     Dates: start: 20101004, end: 20110102
  2. LISINOPRIL [Suspect]
     Indication: DIABETES MELLITUS
     Dosage: 40 MG EVERY DAY PO
     Route: 048
     Dates: start: 20101004, end: 20110102

REACTIONS (1)
  - ANGIOEDEMA [None]
